FAERS Safety Report 4917658-0 (Version None)
Quarter: 2006Q1

REPORT INFORMATION
  Report Type: 
  Country: None (occurrence: None)
  Receive Date: 20060215
  Receipt Date: 20060207
  Transmission Date: 20060701
  Serious: Yes (Hospitalization)
  Sender: FDA-Public Use
  Company Number: 221629

PATIENT
  Age: 49 Year
  Sex: Female
  Weight: 111.1 kg

DRUGS (4)
  1. XOLAIR [Suspect]
     Indication: ASTHMA
     Dosage: 300 MG, Q2W, SUBCUTANEOUS
     Route: 058
     Dates: start: 20051103, end: 20051229
  2. STEROIDS (STEROID NOS) [Concomitant]
  3. TEQUIN [Concomitant]
  4. ADVIL [Concomitant]

REACTIONS (4)
  - ARTHRALGIA [None]
  - MYOSITIS [None]
  - PAIN [None]
  - STAPHYLOCOCCAL INFECTION [None]
